FAERS Safety Report 6265262-7 (Version None)
Quarter: 2009Q3

REPORT INFORMATION
  Report Type: 
  Country: None (occurrence: None)
  Receive Date: 20090709
  Receipt Date: 20090709
  Transmission Date: 20100115
  Serious: No
  Sender: FDA-Public Use
  Company Number: None

PATIENT
  Age: 66 Year
  Sex: Male
  Weight: 94.35 kg

DRUGS (1)
  1. CARVEDILOL [Suspect]
     Indication: CORONARY ARTERY DISEASE
     Dosage: 1.5625 MG BID PO
     Route: 048
     Dates: start: 20090604, end: 20090611

REACTIONS (1)
  - PRURITUS [None]
